FAERS Safety Report 8220843-6 (Version None)
Quarter: 2012Q1

REPORT INFORMATION
  Report Type: 
  Country: None (occurrence: None)
  Receive Date: 20120320
  Receipt Date: 20120313
  Transmission Date: 20120608
  Serious: Yes (Other)
  Sender: FDA-Public Use
  Company Number: US-PFIZER INC-2009221110

PATIENT
  Sex: Male
  Weight: 138 kg

DRUGS (15)
  1. NEXIUM [Concomitant]
     Dosage: UNK
  2. LEXAPRO [Concomitant]
     Dosage: UNK
  3. PRAVASTATIN [Concomitant]
     Dosage: UNK
  4. OXYBUTYNIN [Concomitant]
     Dosage: UNK
  5. TRAZODONE [Concomitant]
     Dosage: UNK
  6. FLUTICASONE [Concomitant]
     Dosage: UNK
  7. PROAIR HFA [Concomitant]
     Dosage: UNK
  8. ADVAIR DISKUS 100/50 [Concomitant]
     Dosage: UNK
  9. VENLAFAXINE HYDROCHLORIDE [Concomitant]
     Indication: DEPRESSION
     Dosage: UNK
  10. NAPROSYN [Concomitant]
     Dosage: UNK
  11. TAMBOCOR [Concomitant]
     Dosage: UNK
  12. MIRTAZAPINE [Concomitant]
     Dosage: UNK
  13. CHANTIX [Suspect]
     Indication: SMOKING CESSATION THERAPY
     Dosage: 0.5 MG, 1X/DAY
     Route: 048
     Dates: start: 20090101, end: 20090101
  14. TIZANIDINE [Concomitant]
     Dosage: UNK
  15. CHANTIX [Suspect]
     Dosage: UNK
     Route: 048
     Dates: start: 20090101, end: 20090101

REACTIONS (3)
  - DRUG DEPENDENCE [None]
  - HYPERTENSION [None]
  - ABNORMAL DREAMS [None]
